FAERS Safety Report 19958684 (Version 1)
Quarter: 2021Q4

REPORT INFORMATION
  Report Type: Report from Study
  Country: NL (occurrence: NL)
  Receive Date: 20211015
  Receipt Date: 20211015
  Transmission Date: 20220303
  Serious: Yes (Hospitalization)
  Sender: FDA-Public Use
  Company Number: NL-PFIZER INC-202101352796

PATIENT
  Age: 20 Year
  Sex: Male

DRUGS (1)
  1. PREGABALIN [Suspect]
     Active Substance: PREGABALIN
     Dosage: 2700 MG (IN A SPAN OF 4 HRS)/(DOSE (MGKG-1)/37.0)

REACTIONS (4)
  - Intentional overdose [Unknown]
  - Somnolence [Unknown]
  - Hyperthermia [Unknown]
  - Hypertension [Unknown]
